FAERS Safety Report 10242754 (Version 1)
Quarter: 2014Q2

REPORT INFORMATION
  Report Type: Spontaneous
  Country: US (occurrence: US)
  Receive Date: 20140617
  Receipt Date: 20140617
  Transmission Date: 20141212
  Serious: No
  Sender: FDA-Public Use
  Company Number: US-GILEAD-2014-0105641

PATIENT
  Age: 37 Year
  Sex: Female

DRUGS (8)
  1. LETAIRIS [Suspect]
     Indication: PULMONARY HYPERTENSION
     Dosage: 10 MG, QD
     Route: 065
     Dates: start: 20130709
  2. TYVASO [Suspect]
     Indication: PRODUCT USED FOR UNKNOWN INDICATION
     Dosage: 54 ?G, QID
     Route: 065
     Dates: start: 20130911
  3. WELLBUTRIN [Concomitant]
  4. FLUTICASONE [Concomitant]
  5. BUMETANIDE [Concomitant]
  6. SPRINTEC [Concomitant]
  7. POTASSIUM [Concomitant]
  8. MULTIVITAMIN                       /00097801/ [Concomitant]

REACTIONS (3)
  - Weight loss poor [Unknown]
  - Eye swelling [Unknown]
  - Fluid retention [Unknown]
